FAERS Safety Report 6762103-6 (Version None)
Quarter: 2010Q2

REPORT INFORMATION
  Report Type: 
  Country: None (occurrence: None)
  Receive Date: 20100609
  Receipt Date: 20100526
  Transmission Date: 20101027
  Serious: Yes (Death)
  Sender: FDA-Public Use
  Company Number: JP-BAYER-200910621BYL

PATIENT
  Age: 15 Year
  Sex: Female

DRUGS (4)
  1. FLUDARA [Suspect]
     Indication: STEM CELL TRANSPLANT
     Dosage: TOTAL DAILY DOSE: 30 MG/M2
     Route: 042
     Dates: start: 20090207, end: 20090210
  2. MELPHALAN HYDROCHLORIDE [Concomitant]
     Indication: STEM CELL TRANSPLANT
     Dosage: TOTAL DAILY DOSE: 70 MG/M2
     Route: 065
     Dates: start: 20090207, end: 20090208
  3. TACROLIMUS HYDRATE [Concomitant]
     Indication: PROPHYLAXIS AGAINST GRAFT VERSUS HOST DISEASE
     Route: 065
     Dates: start: 20090211
  4. METHOTREXATE [Concomitant]
     Indication: PROPHYLAXIS AGAINST GRAFT VERSUS HOST DISEASE
     Route: 065
     Dates: start: 20090211

REACTIONS (2)
  - HAEMORRHAGE INTRACRANIAL [None]
  - HISTIOCYTOSIS HAEMATOPHAGIC [None]
